FAERS Safety Report 8791918 (Version 1)
Quarter: 2012Q4

REPORT INFORMATION
  Report Type: 
  Country: CA (occurrence: CA)
  Receive Date: 20120918
  Receipt Date: 20120918
  Transmission Date: 20130627
  Serious: Yes (Other)
  Sender: FDA-Public Use
  Company Number: CA-B.I. PHARMACEUTICALS,INC./RIDGEFIELD-2012-CN-01868CN

PATIENT
  Age: 65 Year
  Sex: Male

DRUGS (3)
  1. PRADAX [Suspect]
     Dosage: 300 mg
  2. CHOLESTEROL DRUGS [Concomitant]
     Indication: BLOOD CHOLESTEROL
  3. BLOOD PRESSURE DRUGS [Concomitant]
     Indication: BLOOD PRESSURE

REACTIONS (1)
  - Transient ischaemic attack [Unknown]
